FAERS Safety Report 7894538-2 (Version None)
Quarter: 2011Q4

REPORT INFORMATION
  Report Type: 
  Country: None (occurrence: None)
  Receive Date: 20111106
  Receipt Date: 20110816
  Transmission Date: 20120403
  Serious: No
  Sender: FDA-Public Use
  Company Number: US-AMGEN-USASP2011041815

PATIENT
  Age: 10 Year
  Sex: Female

DRUGS (2)
  1. METHOTREXATE [Concomitant]
     Dosage: 1 UNK, UNK
     Dates: start: 20030501
  2. ENBREL [Suspect]
     Indication: JUVENILE ARTHRITIS
     Dosage: 0.7 ML, 2 TIMES/WK
     Dates: start: 20090901

REACTIONS (2)
  - ARTHRITIS [None]
  - TREMOR [None]
